FAERS Safety Report 5537128-9 (Version None)
Quarter: 2007Q4

REPORT INFORMATION
  Report Type: 
  Country: None (occurrence: None)
  Receive Date: 20071205
  Receipt Date: 20071205
  Transmission Date: 20080405
  Serious: Yes (Hospitalization)
  Sender: FDA-Public Use
  Company Number: None

PATIENT
  Age: 78 Year
  Sex: Female
  Weight: 51.7101 kg

DRUGS (2)
  1. EFFEXOR [Suspect]
     Indication: ANXIETY
     Dosage: 37.5MG QDAY PO : 75MG QDAY PO
     Route: 048
     Dates: start: 20071026, end: 20071119
  2. EFFEXOR [Suspect]
     Indication: DEPRESSION
     Dosage: 37.5MG QDAY PO : 75MG QDAY PO
     Route: 048
     Dates: start: 20071026, end: 20071119

REACTIONS (2)
  - DISTURBANCE IN ATTENTION [None]
  - INAPPROPRIATE ANTIDIURETIC HORMONE SECRETION [None]
